FAERS Safety Report 5361826-3 (Version None)
Quarter: 2007Q2

REPORT INFORMATION
  Report Type: 
  Country: None (occurrence: None)
  Receive Date: 20070619
  Receipt Date: 20070607
  Transmission Date: 20071010
  Serious: Yes (Death, Hospitalization)
  Sender: FDA-Public Use
  Company Number: SK-ELI_LILLY_AND_COMPANY-SK200706001997

PATIENT
  Age: 79 Year
  Sex: Female

DRUGS (11)
  1. CYMBALTA [Suspect]
     Indication: DEPRESSION
     Dosage: 60 MG, QOD
     Route: 048
     Dates: start: 20070411
  2. RISPERDAL [Concomitant]
     Indication: ABNORMAL BEHAVIOUR
     Dosage: 1 MG, DAILY (1/D)
     Route: 048
  3. PROTHAZIN [Concomitant]
     Indication: AGITATION
     Dosage: UNK UNK, EACH EVENING
     Route: 048
  4. PIRABENE [Concomitant]
     Indication: COGNITIVE DISORDER
     Route: 048
  5. LORISTA [Concomitant]
     Indication: HYPERTENSION
     Route: 048
  6. CALCITONIN-SALMON [Concomitant]
     Indication: OSTEOPOROSIS
     Route: 045
  7. DIGOXIN [Concomitant]
     Indication: ARRHYTHMIA
     Route: 048
  8. BISOPROLOL FUMARATE [Concomitant]
     Indication: MYOCARDIAL ISCHAEMIA
     Route: 048
  9. MODURETIC 5-50 [Concomitant]
     Indication: HYPERTENSION
     Route: 048
  10. OFLOXIN [Concomitant]
     Indication: URINARY TRACT INFECTION
     Route: 048
  11. NOVALGIN [Concomitant]
     Indication: PAIN

REACTIONS (4)
  - CYSTITIS HAEMORRHAGIC [None]
  - GENERAL PHYSICAL HEALTH DETERIORATION [None]
  - HEPATIC ENZYME INCREASED [None]
  - RENAL FAILURE [None]
